FAERS Safety Report 9189630 (Version 1)
Quarter: 2013Q1

REPORT INFORMATION
  Report Type: Report from Study
  Country: ES (occurrence: ES)
  Receive Date: 20130326
  Receipt Date: 20130326
  Transmission Date: 20140127
  Serious: Yes (Hospitalization)
  Sender: FDA-Public Use
  Company Number: ES-009507513-1303ESP011722

PATIENT
  Age: 64 Year
  Sex: Male

DRUGS (3)
  1. VICTRELIS [Suspect]
     Indication: CHRONIC HEPATITIS C
     Dosage: 800 MG, TID
     Route: 048
     Dates: start: 20120802
  2. REBETOL [Suspect]
     Indication: CHRONIC HEPATITIS C
     Dosage: 1000 MG, QD
     Route: 048
     Dates: start: 20120629
  3. PEGINTERFERON ALFA-2A [Suspect]
     Indication: CHRONIC HEPATITIS C
     Dosage: 180 MICROGRAM, QW
     Route: 058
     Dates: start: 20120629

REACTIONS (2)
  - Neutropenia [Not Recovered/Not Resolved]
  - Anaemia [Not Recovered/Not Resolved]
